FAERS Safety Report 5752456-X (Version None)
Quarter: 2008Q2

REPORT INFORMATION
  Report Type: 
  Country: None (occurrence: None)
  Receive Date: 20080529
  Receipt Date: 20080516
  Transmission Date: 20081010
  Serious: Yes (Disabling, Other)
  Sender: FDA-Public Use
  Company Number: GB-BAUSCH-2006BL006397

PATIENT
  Age: 72 Year
  Sex: Male

DRUGS (5)
  1. PREDNISOLONE SODIUM PHOSPHATE [Suspect]
     Indication: CORNEAL EPITHELIUM DEFECT
     Route: 047
     Dates: start: 20040601
  2. TIMOLOL MALEATE [Suspect]
     Indication: INTRAOCULAR PRESSURE INCREASED
     Route: 047
     Dates: start: 20040601
  3. IODINE [Suspect]
     Route: 047
  4. ACYCLOVIR [Concomitant]
     Indication: KERATITIS HERPETIC
     Route: 048
     Dates: start: 20040601
  5. DIAMOX #1 [Concomitant]
     Dates: start: 20040601

REACTIONS (1)
  - BLINDNESS [None]
